FAERS Safety Report 18258053 (Version 1)
Quarter: 2020Q3

REPORT INFORMATION
  Report Type: Report from Study
  Country: CA (occurrence: CA)
  Receive Date: 20200911
  Receipt Date: 20200911
  Transmission Date: 20201103
  Serious: Yes (Life-Threatening)
  Sender: FDA-Public Use
  Company Number: CA-JNJFOC-20200208239

PATIENT
  Age: 15 Year
  Sex: Female

DRUGS (1)
  1. REMICADE [Suspect]
     Active Substance: INFLIXIMAB
     Indication: CROHN^S DISEASE
     Dosage: PATIENT RECEIVED 6TH REMICADE INFUSION ON 05/FEB/2020
     Route: 042
     Dates: start: 20190610

REACTIONS (6)
  - Belligerence [Recovering/Resolving]
  - Vomiting [Unknown]
  - Suicide attempt [Unknown]
  - Malaise [Unknown]
  - Treatment noncompliance [Unknown]
  - Abnormal behaviour [Recovering/Resolving]

NARRATIVE: CASE EVENT DATE: 20200129
